APPROVED DRUG PRODUCT: SODIUM CHLORIDE 0.9% IN PLASTIC CONTAINER
Active Ingredient: SODIUM CHLORIDE
Strength: 27MG/3ML (9MG/ML)
Dosage Form/Route: SOLUTION;INJECTION
Application: A203352 | Product #002
Applicant: JUBILANT CADISTA PHARMACEUTICALS INC
Approved: May 18, 2016 | RLD: No | RS: No | Type: DISCN